FAERS Safety Report 5566816-3 (Version None)
Quarter: 2007Q4

REPORT INFORMATION
  Report Type: 
  Country: None (occurrence: None)
  Receive Date: 20071219
  Receipt Date: 20071214
  Transmission Date: 20080405
  Serious: Yes (Other)
  Sender: FDA-Public Use
  Company Number: B0499654A

PATIENT
  Age: 41 Year
  Sex: Female

DRUGS (5)
  1. SEROXAT [Suspect]
     Indication: DRUG USE FOR UNKNOWN INDICATION
     Route: 048
  2. LEVOTHYROXINE SODIUM [Concomitant]
  3. ETHINYL ESTRADIOL AND LEVONORGESTREL [Concomitant]
  4. LACTULOSE [Concomitant]
  5. TOLTERODINE TARTRATE [Concomitant]

REACTIONS (3)
  - COMPLEX PARTIAL SEIZURES [None]
  - GRAND MAL CONVULSION [None]
  - LOWER RESPIRATORY TRACT INFECTION [None]
